FAERS Safety Report 7573922-0 (Version None)
Quarter: 2011Q2

REPORT INFORMATION
  Report Type: 
  Country: None (occurrence: None)
  Receive Date: 20110627
  Receipt Date: 20110620
  Transmission Date: 20111010
  Serious: Yes (Congenital Anomaly, Other)
  Sender: FDA-Public Use
  Company Number: D0071574B

PATIENT
  Sex: Female

DRUGS (3)
  1. ANTIHYPERTENSIVE [Concomitant]
     Route: 064
  2. PAROXETINE HCL [Suspect]
     Dosage: 20MG PER DAY
     Route: 064
     Dates: start: 20090707, end: 20100317
  3. FOLIC ACID [Concomitant]
     Route: 064
     Dates: start: 20090701, end: 20091001

REACTIONS (2)
  - HYPERBILIRUBINAEMIA NEONATAL [None]
  - HAEMANGIOMA CONGENITAL [None]
